FAERS Safety Report 11890307 (Version 1)
Quarter: 2016Q1

REPORT INFORMATION
  Report Type: Spontaneous
  Country: US (occurrence: US)
  Receive Date: 20160105
  Receipt Date: 20160105
  Transmission Date: 20160526
  Serious: No
  Sender: FDA-Public Use
  Company Number: US-BAYER-2016-001450

PATIENT
  Age: 58 Year
  Sex: Female
  Weight: 99.32 kg

DRUGS (1)
  1. CLARITIN [Suspect]
     Active Substance: LORATADINE
     Indication: NASOPHARYNGITIS
     Dosage: 2 DF, PRN
     Route: 048

REACTIONS (4)
  - Therapeutic response unexpected [None]
  - Therapeutic response unexpected [Recovered/Resolved]
  - Product use issue [None]
  - Intentional product use issue [None]

NARRATIVE: CASE EVENT DATE: 20151230
